FAERS Safety Report 22174400 (Version 1)
Quarter: 2023Q2

REPORT INFORMATION
  Report Type: Spontaneous
  Country: DE (occurrence: DE)
  Receive Date: 20230405
  Receipt Date: 20230405
  Transmission Date: 20230722
  Serious: Yes (Other)
  Sender: FDA-Public Use
  Company Number: None

PATIENT
  Age: 66 Year
  Sex: Male

DRUGS (1)
  1. UPADACITINIB [Suspect]
     Active Substance: UPADACITINIB
     Indication: Dermatitis atopic
     Dosage: 15 MG/D?FIRST ADMIN DATE: 29 MAR 2022
     Route: 048
     Dates: end: 20230313

REACTIONS (6)
  - Transaminases increased [Unknown]
  - Pyrexia [Unknown]
  - Myalgia [Unknown]
  - Hepatitis E [Recovering/Resolving]
  - Fatigue [Unknown]
  - Blood bilirubin increased [Unknown]

NARRATIVE: CASE EVENT DATE: 20230301
